FAERS Safety Report 7984032 (Version 2)
Quarter: 2012Q4

REPORT INFORMATION
  Report Type: 
  Country: NZ (occurrence: NZ)
  Receive Date: 20110609
  Receipt Date: 20121114
  Transmission Date: 20130627
  Serious: Yes (Death)
  Sender: FDA-Public Use
  Company Number: PHHO2007NZ09700

PATIENT
  Age: 82 Year
  Sex: Female

DRUGS (2)
  1. CLOZARIL [Suspect]
     Indication: SCHIZOPHRENIA
     Dosage: 125 mg, Nocte
     Route: 048
     Dates: start: 20030917, end: 20070606
  2. BENDROFLUAZIDE [Concomitant]
     Indication: HYPERTENSION
     Dosage: 2.5 mg, Mane
     Route: 048
     Dates: start: 2003

REACTIONS (2)
  - Death [Fatal]
  - clozapine level was 790 nmol/ [Unknown]
